FAERS Safety Report 5786416-X (Version None)
Quarter: 2008Q2

REPORT INFORMATION
  Report Type: 
  Country: None (occurrence: None)
  Receive Date: 20080624
  Receipt Date: 20080613
  Transmission Date: 20081010
  Serious: Yes (Other)
  Sender: FDA-Public Use
  Company Number: US-PFIZER INC-2008032290

PATIENT
  Sex: Female
  Weight: 102 kg

DRUGS (5)
  1. DEPO-MEDROL [Suspect]
     Route: 050
  2. LIDOCAINE [Suspect]
     Route: 050
  3. MARCAINE [Suspect]
     Route: 050
  4. IBUROFEN [Concomitant]
  5. CELEBREX [Concomitant]

REACTIONS (3)
  - ARTHRALGIA [None]
  - MONOPLEGIA [None]
  - SWELLING [None]
